FAERS Safety Report 4492661-6 (Version None)
Quarter: 2004Q4

REPORT INFORMATION
  Report Type: 
  Country: None (occurrence: None)
  Receive Date: 20041102
  Receipt Date: 20041102
  Transmission Date: 20050328
  Serious: Yes (Death)
  Sender: FDA-Public Use
  Company Number: None

PATIENT
  Age: 18 Year
  Sex: Male
  Weight: 65.318 kg

DRUGS (5)
  1. REMODULIN [Suspect]
     Indication: PULMONARY HYPERTENSION
     Dosage: 88 NG/KG/KG/MIN
     Dates: start: 20031217
  2. TRACLEER [Concomitant]
  3. WARFARIN SODIUM [Concomitant]
  4. LASIX [Concomitant]
  5. ZAROXOLYN [Concomitant]

REACTIONS (8)
  - ARRHYTHMIA [None]
  - DISEASE PROGRESSION [None]
  - DYSPNOEA [None]
  - FLUID RETENTION [None]
  - OEDEMA [None]
  - SYNCOPE [None]
  - TREATMENT NONCOMPLIANCE [None]
  - WEIGHT INCREASED [None]
